FAERS Safety Report 9033045 (Version 1)
Quarter: 2013Q1

REPORT INFORMATION
  Report Type: Spontaneous
  Country: IN (occurrence: None)
  Receive Date: 20130109
  Receipt Date: 20130109
  Transmission Date: 20140127
  Serious: Yes (Death, Hospitalization)
  Sender: FDA-Public Use
  Company Number: 2008AP000249

PATIENT
  Age: 1 Month
  Sex: 0

DRUGS (1)
  1. CARBAMAZEPINE (CARBAMAZEPINE) CHEWABLE TABLET [Suspect]
     Indication: EPILEPSY
     Route: 064

REACTIONS (4)
  - Cerebral arteriovenous malformation haemorrhagic [None]
  - Dysmorphism [None]
  - Hypercalcaemia [None]
  - Maternal drugs affecting foetus [None]
